FAERS Safety Report 8069299-7 (Version None)
Quarter: 2012Q1

REPORT INFORMATION
  Report Type: 
  Country: None (occurrence: None)
  Receive Date: 20120125
  Receipt Date: 20120119
  Transmission Date: 20120608
  Serious: Yes (Life-Threatening, Hospitalization)
  Sender: FDA-Public Use
  Company Number: US-BAYER-201040898NA

PATIENT
  Age: 27 Year
  Sex: Female
  Weight: 80.998 kg

DRUGS (6)
  1. YAZ [Suspect]
     Indication: CONTRACEPTION
     Dosage: UNK
     Route: 048
     Dates: start: 20080801, end: 20081101
  2. AZITHROMYCIN [Concomitant]
     Dosage: 250 MG, QD
     Route: 048
     Dates: start: 20081112, end: 20081115
  3. PREVACID [Concomitant]
     Dosage: 15 MG, UNK
     Route: 048
  4. AZITHROMYCIN [Concomitant]
     Indication: OTITIS MEDIA
     Dosage: 250 MG, BID
     Route: 048
     Dates: start: 20081111, end: 20081111
  5. DROSPIRENONE AND ETHINYL ESTRADIOL [Suspect]
     Indication: CONTRACEPTION
     Dosage: UNK
     Route: 048
     Dates: start: 20080801, end: 20081101
  6. PREVACID [Concomitant]
     Indication: GASTROOESOPHAGEAL REFLUX DISEASE
     Dosage: 30 MG, CONT
     Route: 048

REACTIONS (5)
  - PAIN [None]
  - CHEST PAIN [None]
  - DYSPNOEA [None]
  - FATIGUE [None]
  - PULMONARY EMBOLISM [None]
